FAERS Safety Report 9525911 (Version 2)
Quarter: 2013Q4

REPORT INFORMATION
  Report Type: Spontaneous
  Country: US (occurrence: US)
  Receive Date: 20130916
  Receipt Date: 20131028
  Transmission Date: 20140711
  Serious: Yes (Hospitalization)
  Sender: FDA-Public Use
  Company Number: US-BIOGENIDEC-2013BI084759

PATIENT
  Age: 45 Year
  Sex: Female

DRUGS (1)
  1. TYSABRI [Suspect]
     Indication: MULTIPLE SCLEROSIS
     Route: 042
     Dates: start: 20090701

REACTIONS (5)
  - Multiple sclerosis [Not Recovered/Not Resolved]
  - Oedema [Unknown]
  - Hypokalaemia [Unknown]
  - Urinary tract infection [Unknown]
  - Drug specific antibody present [Unknown]
